FAERS Safety Report 25504100 (Version 1)
Quarter: 2025Q3

REPORT INFORMATION
  Report Type: Spontaneous
  Country: GB (occurrence: GB)
  Receive Date: 20250702
  Receipt Date: 20250702
  Transmission Date: 20251020
  Serious: Yes (Other)
  Sender: MYLAN
  Company Number: GB-MHRA-TPP47830822C10035041YC1750772268661

PATIENT
  Age: 85 Year
  Sex: Female
  Weight: 66 kg

DRUGS (52)
  1. DOXYCYCLINE [Suspect]
     Active Substance: DOXYCYCLINE
     Indication: Ill-defined disorder
     Dosage: 200 MILLIGRAM, QD (100MG CAPSULES TAKE TWO CAPSULES NOW ON DAY 1 THEN TAKE ONE CA..)
     Dates: start: 20250623
  2. DOXYCYCLINE [Suspect]
     Active Substance: DOXYCYCLINE
     Dosage: 200 MILLIGRAM, QD (100MG CAPSULES TAKE TWO CAPSULES NOW ON DAY 1 THEN TAKE ONE CA..)
     Dates: start: 20250623
  3. DOXYCYCLINE [Suspect]
     Active Substance: DOXYCYCLINE
     Dosage: 200 MILLIGRAM, QD (100MG CAPSULES TAKE TWO CAPSULES NOW ON DAY 1 THEN TAKE ONE CA..)
     Route: 048
     Dates: start: 20250623
  4. DOXYCYCLINE [Suspect]
     Active Substance: DOXYCYCLINE
     Dosage: 200 MILLIGRAM, QD (100MG CAPSULES TAKE TWO CAPSULES NOW ON DAY 1 THEN TAKE ONE CA..)
     Route: 048
     Dates: start: 20250623
  5. DOXYCYCLINE [Suspect]
     Active Substance: DOXYCYCLINE
     Dosage: 100 MILLIGRAM, QD (100MG CAPSULES TAKE TWO CAPSULES NOW ON DAY 1 THEN TAKE ONE CA..)
  6. DOXYCYCLINE [Suspect]
     Active Substance: DOXYCYCLINE
     Dosage: 100 MILLIGRAM, QD (100MG CAPSULES TAKE TWO CAPSULES NOW ON DAY 1 THEN TAKE ONE CA..)
  7. DOXYCYCLINE [Suspect]
     Active Substance: DOXYCYCLINE
     Dosage: 100 MILLIGRAM, QD (100MG CAPSULES TAKE TWO CAPSULES NOW ON DAY 1 THEN TAKE ONE CA..)
     Route: 048
  8. DOXYCYCLINE [Suspect]
     Active Substance: DOXYCYCLINE
     Dosage: 100 MILLIGRAM, QD (100MG CAPSULES TAKE TWO CAPSULES NOW ON DAY 1 THEN TAKE ONE CA..)
     Route: 048
  9. DULOXETINE [Concomitant]
     Active Substance: DULOXETINE
     Indication: Ill-defined disorder
     Dosage: 1 DOSAGE FORM, QD (TAKE ONE DAILY)
     Dates: start: 20250428, end: 20250526
  10. DULOXETINE [Concomitant]
     Active Substance: DULOXETINE
     Dosage: 1 DOSAGE FORM, QD (TAKE ONE DAILY)
     Route: 065
     Dates: start: 20250428, end: 20250526
  11. DULOXETINE [Concomitant]
     Active Substance: DULOXETINE
     Dosage: 1 DOSAGE FORM, QD (TAKE ONE DAILY)
     Route: 065
     Dates: start: 20250428, end: 20250526
  12. DULOXETINE [Concomitant]
     Active Substance: DULOXETINE
     Dosage: 1 DOSAGE FORM, QD (TAKE ONE DAILY)
     Dates: start: 20250428, end: 20250526
  13. LANSOPRAZOLE [Concomitant]
     Active Substance: LANSOPRAZOLE
     Indication: Ill-defined disorder
     Dosage: 1 DOSAGE FORM, QD (TAKE ONE DAILY AS REQUIRED TO CONTROL EXCESS ST...)
     Dates: start: 20240422
  14. LANSOPRAZOLE [Concomitant]
     Active Substance: LANSOPRAZOLE
     Dosage: 1 DOSAGE FORM, QD (TAKE ONE DAILY AS REQUIRED TO CONTROL EXCESS ST...)
     Route: 065
     Dates: start: 20240422
  15. LANSOPRAZOLE [Concomitant]
     Active Substance: LANSOPRAZOLE
     Dosage: 1 DOSAGE FORM, QD (TAKE ONE DAILY AS REQUIRED TO CONTROL EXCESS ST...)
     Route: 065
     Dates: start: 20240422
  16. LANSOPRAZOLE [Concomitant]
     Active Substance: LANSOPRAZOLE
     Dosage: 1 DOSAGE FORM, QD (TAKE ONE DAILY AS REQUIRED TO CONTROL EXCESS ST...)
     Dates: start: 20240422
  17. CLARITHROMYCIN [Concomitant]
     Active Substance: CLARITHROMYCIN
     Indication: Cough
     Dosage: 1 DOSAGE FORM, BID (TAKE ONE TWICE A DAY FOR FIVE DAYS FOR ACUTE COUGH)
     Dates: start: 20250624
  18. CLARITHROMYCIN [Concomitant]
     Active Substance: CLARITHROMYCIN
     Dosage: 1 DOSAGE FORM, BID (TAKE ONE TWICE A DAY FOR FIVE DAYS FOR ACUTE COUGH)
     Route: 065
     Dates: start: 20250624
  19. CLARITHROMYCIN [Concomitant]
     Active Substance: CLARITHROMYCIN
     Dosage: 1 DOSAGE FORM, BID (TAKE ONE TWICE A DAY FOR FIVE DAYS FOR ACUTE COUGH)
     Route: 065
     Dates: start: 20250624
  20. CLARITHROMYCIN [Concomitant]
     Active Substance: CLARITHROMYCIN
     Dosage: 1 DOSAGE FORM, BID (TAKE ONE TWICE A DAY FOR FIVE DAYS FOR ACUTE COUGH)
     Dates: start: 20250624
  21. CLOPIDOGREL [Concomitant]
     Active Substance: CLOPIDOGREL BISULFATE
     Indication: Ill-defined disorder
     Dosage: 1 DOSAGE FORM, QD (TAKE ONE DAILY  FOR SECONDARY PREVENTION OF CAR...)
     Dates: start: 20240422
  22. CLOPIDOGREL [Concomitant]
     Active Substance: CLOPIDOGREL BISULFATE
     Dosage: 1 DOSAGE FORM, QD (TAKE ONE DAILY  FOR SECONDARY PREVENTION OF CAR...)
     Route: 065
     Dates: start: 20240422
  23. CLOPIDOGREL [Concomitant]
     Active Substance: CLOPIDOGREL BISULFATE
     Dosage: 1 DOSAGE FORM, QD (TAKE ONE DAILY  FOR SECONDARY PREVENTION OF CAR...)
     Route: 065
     Dates: start: 20240422
  24. CLOPIDOGREL [Concomitant]
     Active Substance: CLOPIDOGREL BISULFATE
     Dosage: 1 DOSAGE FORM, QD (TAKE ONE DAILY  FOR SECONDARY PREVENTION OF CAR...)
     Dates: start: 20240422
  25. Delofine xl [Concomitant]
     Indication: Ill-defined disorder
     Dosage: 1 DOSAGE FORM, QD (TAKE ONE DAILY)
     Dates: start: 20240422
  26. Delofine xl [Concomitant]
     Dosage: 1 DOSAGE FORM, QD (TAKE ONE DAILY)
     Route: 065
     Dates: start: 20240422
  27. Delofine xl [Concomitant]
     Dosage: 1 DOSAGE FORM, QD (TAKE ONE DAILY)
     Route: 065
     Dates: start: 20240422
  28. Delofine xl [Concomitant]
     Dosage: 1 DOSAGE FORM, QD (TAKE ONE DAILY)
     Dates: start: 20240422
  29. IBUPROFEN [Concomitant]
     Active Substance: IBUPROFEN
     Indication: Ill-defined disorder
  30. IBUPROFEN [Concomitant]
     Active Substance: IBUPROFEN
     Route: 065
  31. IBUPROFEN [Concomitant]
     Active Substance: IBUPROFEN
     Route: 065
  32. IBUPROFEN [Concomitant]
     Active Substance: IBUPROFEN
  33. ACETAMINOPHEN [Concomitant]
     Active Substance: ACETAMINOPHEN
     Indication: Pain
  34. ACETAMINOPHEN [Concomitant]
     Active Substance: ACETAMINOPHEN
     Route: 065
  35. ACETAMINOPHEN [Concomitant]
     Active Substance: ACETAMINOPHEN
     Route: 065
  36. ACETAMINOPHEN [Concomitant]
     Active Substance: ACETAMINOPHEN
  37. QUININE SULFATE [Concomitant]
     Active Substance: QUININE SULFATE
     Indication: Muscle spasms
  38. QUININE SULFATE [Concomitant]
     Active Substance: QUININE SULFATE
     Route: 065
  39. QUININE SULFATE [Concomitant]
     Active Substance: QUININE SULFATE
     Route: 065
  40. QUININE SULFATE [Concomitant]
     Active Substance: QUININE SULFATE
  41. PREGABALIN [Concomitant]
     Active Substance: PREGABALIN
     Indication: Ill-defined disorder
     Dosage: 1 DOSAGE FORM, PM (TAKE ONE AT NIGHT)
     Dates: start: 20241007
  42. PREGABALIN [Concomitant]
     Active Substance: PREGABALIN
     Dosage: 1 DOSAGE FORM, PM (TAKE ONE AT NIGHT)
     Route: 065
     Dates: start: 20241007
  43. PREGABALIN [Concomitant]
     Active Substance: PREGABALIN
     Dosage: 1 DOSAGE FORM, PM (TAKE ONE AT NIGHT)
     Route: 065
     Dates: start: 20241007
  44. PREGABALIN [Concomitant]
     Active Substance: PREGABALIN
     Dosage: 1 DOSAGE FORM, PM (TAKE ONE AT NIGHT)
     Dates: start: 20241007
  45. ATORVASTATIN [Concomitant]
     Active Substance: ATORVASTATIN
     Indication: Ill-defined disorder
     Dosage: 1 DOSAGE FORM, QD (TAKE ONE DAILY)
     Dates: start: 20250121
  46. ATORVASTATIN [Concomitant]
     Active Substance: ATORVASTATIN
     Dosage: 1 DOSAGE FORM, QD (TAKE ONE DAILY)
     Route: 065
     Dates: start: 20250121
  47. ATORVASTATIN [Concomitant]
     Active Substance: ATORVASTATIN
     Dosage: 1 DOSAGE FORM, QD (TAKE ONE DAILY)
     Route: 065
     Dates: start: 20250121
  48. ATORVASTATIN [Concomitant]
     Active Substance: ATORVASTATIN
     Dosage: 1 DOSAGE FORM, QD (TAKE ONE DAILY)
     Dates: start: 20250121
  49. NITROGLYCERIN [Concomitant]
     Active Substance: NITROGLYCERIN
     Indication: Ill-defined disorder
  50. NITROGLYCERIN [Concomitant]
     Active Substance: NITROGLYCERIN
     Route: 060
  51. NITROGLYCERIN [Concomitant]
     Active Substance: NITROGLYCERIN
     Route: 060
  52. NITROGLYCERIN [Concomitant]
     Active Substance: NITROGLYCERIN

REACTIONS (2)
  - Swollen tongue [Recovered/Resolved]
  - Vomiting [Unknown]

NARRATIVE: CASE EVENT DATE: 20250624
